FAERS Safety Report 5809147-6 (Version None)
Quarter: 2008Q3

REPORT INFORMATION
  Report Type: 
  Country: None (occurrence: None)
  Receive Date: 20080714
  Receipt Date: 20080707
  Transmission Date: 20090109
  Serious: Yes (Life-Threatening)
  Sender: FDA-Public Use
  Company Number: JP-ASTRAZENECA-2008AP05092

PATIENT
  Age: 35134 Day
  Sex: Female

DRUGS (4)
  1. SEROQUEL [Suspect]
     Indication: RESTLESSNESS
     Route: 048
     Dates: start: 20080619, end: 20080619
  2. SEROQUEL [Suspect]
     Indication: AGITATION
     Route: 048
     Dates: start: 20080619, end: 20080619
  3. DIOVAN [Concomitant]
     Indication: HYPERTENSION
     Route: 048
  4. TORSEMIDE [Concomitant]
     Indication: HYPERTENSION
     Route: 048

REACTIONS (1)
  - ANAPHYLACTIC SHOCK [None]
